FAERS Safety Report 6402587-6 (Version None)
Quarter: 2009Q4

REPORT INFORMATION
  Report Type: 
  Country: None (occurrence: None)
  Receive Date: 20091009
  Receipt Date: 20091005
  Transmission Date: 20100525
  Serious: Yes (Other)
  Sender: FDA-Public Use
  Company Number: GXKR2009DE10948

PATIENT
  Sex: Female

DRUGS (3)
  1. URSODEOXYCHLOLIC ACID) (URSODEOXYCHLO LIC ACID) FILM-COATED TABLET [Suspect]
     Indication: BILIARY CIRRHOSIS
     Dosage: 200 MG, TID, ORAL
     Route: 048
     Dates: start: 20050601
  2. LEVOTHYROXINE (NGX) (LEOVTHYROXINE SODIUM) TABLET [Suspect]
     Dosage: 25 UG, QD, ORAL
     Route: 048
     Dates: start: 20050101
  3. METFORMIN (NGX) (METFORMIN) FILM-COATED TABLET [Suspect]
     Dosage: 500 MG, QD, ORAL
     Route: 048
     Dates: start: 20050101

REACTIONS (1)
  - ANTINUCLEAR ANTIBODY INCREASED [None]
